FAERS Safety Report 8369124-0 (Version None)
Quarter: 2012Q2

REPORT INFORMATION
  Report Type: 
  Country: None (occurrence: None)
  Receive Date: 20120518
  Receipt Date: 20110420
  Transmission Date: 20120825
  Serious: Yes (Other)
  Sender: FDA-Public Use
  Company Number: IN-RANBAXY-2011R1-56486

PATIENT
  Age: 48 Year
  Sex: Male

DRUGS (1)
  1. PENTAZOCINE LACTATE [Suspect]
     Indication: PRODUCT USED FOR UNKNOWN INDICATION
     Dosage: 300MG DAILY (10 INJECTIONS)
     Route: 065

REACTIONS (1)
  - DYSTONIA [None]
